FAERS Safety Report 5915684-6 (Version None)
Quarter: 2008Q4

REPORT INFORMATION
  Report Type: 
  Country: None (occurrence: None)
  Receive Date: 20081010
  Receipt Date: 20081006
  Transmission Date: 20090506
  Serious: Yes (Hospitalization)
  Sender: FDA-Public Use
  Company Number: US-ASTRAZENECA-2008UW21964

PATIENT
  Age: 57 Year
  Sex: Female
  Weight: 86.2 kg

DRUGS (2)
  1. PULMICORT [Suspect]
     Indication: ASTHMA LATE ONSET
     Route: 055
     Dates: end: 20060101
  2. DAYPRO [Concomitant]

REACTIONS (1)
  - STAPHYLOCOCCAL INFECTION [None]
